FAERS Safety Report 21486141 (Version 10)
Quarter: 2025Q2

REPORT INFORMATION
  Report Type: Spontaneous
  Country: IN (occurrence: IN)
  Receive Date: 20221020
  Receipt Date: 20250410
  Transmission Date: 20250716
  Serious: Yes (Other)
  Sender: PFIZER
  Company Number: IN-PFIZER INC-202101797727

PATIENT
  Age: 58 Year
  Sex: Male
  Weight: 65 kg

DRUGS (5)
  1. LORLATINIB [Suspect]
     Active Substance: LORLATINIB
     Indication: Non-small cell lung cancer metastatic
     Dosage: 100 MG, 1X/DAY
     Route: 048
     Dates: start: 20211118
  2. LORLATINIB [Suspect]
     Active Substance: LORLATINIB
     Dates: end: 20220220
  3. LORLATINIB [Suspect]
     Active Substance: LORLATINIB
     Dosage: 50 MG, 1X/DAY
     Route: 048
  4. LEVETIRACETAM [Concomitant]
     Active Substance: LEVETIRACETAM
     Dosage: 500 MG, 2X/DAY
  5. MULTIVIT [VITAMINS NOS] [Concomitant]

REACTIONS (14)
  - Hydrocele [Unknown]
  - Insomnia [Unknown]
  - Dizziness [Unknown]
  - Rhinorrhoea [Unknown]
  - Tinnitus [Unknown]
  - Decreased appetite [Unknown]
  - Somnolence [Not Recovered/Not Resolved]
  - Glucose urine present [Unknown]
  - Protein urine present [Unknown]
  - General physical health deterioration [Not Recovered/Not Resolved]
  - Scrotal swelling [Unknown]
  - Testicular swelling [Unknown]
  - Dysarthria [Unknown]
  - Oedema peripheral [Unknown]

NARRATIVE: CASE EVENT DATE: 20220207
